FAERS Safety Report 7887783-3 (Version None)
Quarter: 2011Q4

REPORT INFORMATION
  Report Type: 
  Country: None (occurrence: None)
  Receive Date: 20111101
  Receipt Date: 20111018
  Transmission Date: 20120403
  Serious: Yes (Hospitalization, Disabling)
  Sender: FDA-Public Use
  Company Number: TCI2010A06502

PATIENT
  Age: 85 Year
  Sex: Male

DRUGS (10)
  1. ZETIA [Concomitant]
  2. UFT [Concomitant]
  3. ACTOS [Suspect]
     Indication: DIABETES MELLITUS
     Dosage: 15 MG (15 MG, 1 IN 1 D), PER ORAL
     Route: 048
     Dates: end: 20101111
  4. CONIEL (BENIDIPINE HYDROCHLORIDE) [Concomitant]
  5. ZOLPIDEM TARTRATE [Concomitant]
  6. URINORM (BENZBROMARONE) [Concomitant]
  7. EPADEL (ETHYL ICOSAPENTATE) [Concomitant]
  8. OPALMON (LIMAPROST) [Concomitant]
  9. SPIROPENT (CLENBUTEROL HYDROCHLORIDE) [Concomitant]
  10. PLETAL [Concomitant]

REACTIONS (7)
  - MUSCLE DISORDER [None]
  - HYPERGAMMAGLOBULINAEMIA BENIGN MONOCLONAL [None]
  - INAPPROPRIATE ANTIDIURETIC HORMONE SECRETION [None]
  - CONTUSION [None]
  - FALL [None]
  - ANAEMIA [None]
  - BLOOD CREATINE PHOSPHOKINASE INCREASED [None]
